FAERS Safety Report 10887741 (Version 1)
Quarter: 2015Q1

REPORT INFORMATION
  Report Type: Spontaneous
  Country: US (occurrence: US)
  Receive Date: 20150304
  Receipt Date: 20150304
  Transmission Date: 20150721
  Serious: No
  Sender: FDA-Public Use
  Company Number: US-AMGEN-USASP2014040109

PATIENT
  Age: 32 Year
  Sex: Female

DRUGS (1)
  1. ENBREL [Suspect]
     Active Substance: ETANERCEPT
     Indication: RHEUMATOID ARTHRITIS
     Dosage: UNK UNK, QWK
     Route: 065
     Dates: start: 20140514

REACTIONS (5)
  - Oropharyngeal pain [Recovered/Resolved]
  - Headache [Not Recovered/Not Resolved]
  - Malaise [Recovered/Resolved]
  - Localised infection [Recovered/Resolved]
  - Ear pain [Recovered/Resolved]

NARRATIVE: CASE EVENT DATE: 20140514
